FAERS Safety Report 21742479 (Version 1)
Quarter: 2022Q4

REPORT INFORMATION
  Report Type: Report from Study
  Country: US (occurrence: US)
  Receive Date: 20221216
  Receipt Date: 20221216
  Transmission Date: 20230112
  Serious: No
  Sender: FDA-Public Use
  Company Number: US-ABBVIE-4187443

PATIENT
  Sex: Male

DRUGS (1)
  1. RINVOQ [Suspect]
     Active Substance: UPADACITINIB
     Indication: Product used for unknown indication
     Route: 048
     Dates: start: 20221029

REACTIONS (3)
  - Pyrexia [Not Recovered/Not Resolved]
  - Wrong technique in product usage process [Unknown]
  - Nausea [Unknown]

NARRATIVE: CASE EVENT DATE: 20220101
